FAERS Safety Report 11475552 (Version 1)
Quarter: 2015Q3

REPORT INFORMATION
  Report Type: Spontaneous
  Country: US (occurrence: US)
  Receive Date: 20150909
  Receipt Date: 20150909
  Transmission Date: 20151125
  Serious: No
  Sender: FDA-Public Use
  Company Number: US-ACTELION PHARMACEUTICALS US, INC.-A-US2014-99016

PATIENT
  Age: 69 Year
  Sex: Female
  Weight: 99.77 kg

DRUGS (14)
  1. HYDROCHLOROTHIAZIDE. [Concomitant]
     Active Substance: HYDROCHLOROTHIAZIDE
     Dosage: 12.5 MG, UNK
  2. ASPIRIN. [Concomitant]
     Active Substance: ASPIRIN
     Dosage: 81 MG, QD
  3. LOSARTAN. [Concomitant]
     Active Substance: LOSARTAN
     Dosage: 100 MG, UNK
  4. GLIPIZIDE. [Concomitant]
     Active Substance: GLIPIZIDE
     Dosage: 10 MG, UNK
  5. MULTIVITAMIN [Concomitant]
     Active Substance: VITAMINS
     Dosage: 100 MG, UNK
  6. PRAVASTATIN [Concomitant]
     Active Substance: PRAVASTATIN\PRAVASTATIN SODIUM
     Dosage: 20 MG, UNK
  7. LISINOPRIL. [Concomitant]
     Active Substance: LISINOPRIL
     Dosage: 40 MG, UNK
  8. METFORMIN [Concomitant]
     Active Substance: METFORMIN HYDROCHLORIDE
     Dosage: 500 MG, UNK
  9. PROZAC [Concomitant]
     Active Substance: FLUOXETINE HYDROCHLORIDE
     Dosage: 20 MG, UNK
  10. ACTOS [Concomitant]
     Active Substance: PIOGLITAZONE HYDROCHLORIDE
     Dosage: 30 MG, UNK
  11. PROTOPIC [Concomitant]
     Active Substance: TACROLIMUS
  12. VITAMIN D [Concomitant]
     Active Substance: CHOLECALCIFEROL
     Dosage: 1000 U, UNK
  13. VALCHLOR [Suspect]
     Active Substance: MECHLORETHAMINE
     Indication: MYCOSIS FUNGOIDES
     Dosage: UNK, QOD
     Route: 061
     Dates: start: 20140401
  14. VALCHLOR [Suspect]
     Active Substance: MECHLORETHAMINE
     Dosage: UNK
     Route: 061
     Dates: start: 20140624, end: 201506

REACTIONS (13)
  - Skin exfoliation [Not Recovered/Not Resolved]
  - Erythema [Not Recovered/Not Resolved]
  - Skin haemorrhage [Recovering/Resolving]
  - Pruritus [Not Recovered/Not Resolved]
  - Swelling face [Unknown]
  - Scab [Not Recovered/Not Resolved]
  - Pain [Unknown]
  - Middle insomnia [Not Recovered/Not Resolved]
  - Skin disorder [Recovering/Resolving]
  - Wound drainage [Recovering/Resolving]
  - Blister [Unknown]
  - Skin burning sensation [Recovering/Resolving]
  - Condition aggravated [Unknown]

NARRATIVE: CASE EVENT DATE: 20140501
